FAERS Safety Report 6973968-7 (Version None)
Quarter: 2010Q3

REPORT INFORMATION
  Report Type: 
  Country: None (occurrence: None)
  Receive Date: 20100909
  Receipt Date: 20100831
  Transmission Date: 20110219
  Serious: Yes (Life-Threatening, Hospitalization)
  Sender: FDA-Public Use
  Company Number: GXKR2010CZ09943

PATIENT
  Age: 44 Year
  Sex: Male

DRUGS (9)
  1. DOXORUBICIN (NGX) [Suspect]
     Indication: B-CELL LYMPHOMA
     Dosage: 50 MG/M2, ON DAY 1
     Route: 042
  2. DOXORUBICIN (NGX) [Suspect]
     Dosage: 2/3 OF DOSE
     Route: 042
  3. VINCRISTINE (NGX) [Suspect]
     Indication: B-CELL LYMPHOMA
     Dosage: 2 MG, ON DAY 1
     Route: 042
  4. PREDNISONE (NGX) [Suspect]
     Indication: B-CELL LYMPHOMA
     Dosage: 100 MG, (DAY 1 TO 5)
     Route: 048
  5. RITUXIMAB [Suspect]
     Indication: B-CELL LYMPHOMA
     Dosage: 375 MG/M2, ON DAY 1
     Route: 042
  6. CYCLOPHOSPHAMIDE [Suspect]
     Indication: B-CELL LYMPHOMA
     Dosage: 750 MG/M2, ON DAY 1
     Route: 042
  7. CYCLOPHOSPHAMIDE [Suspect]
     Dosage: 2/3 OF DOSE
     Route: 042
  8. GRANULOCYTE COLONY STIMULATING FACTOR [Concomitant]
     Indication: FEBRILE NEUTROPENIA
     Route: 065
  9. METHYLPREDNISOLONE [Concomitant]
     Dosage: 80 MG, DAYS 1 TO 5
     Route: 042

REACTIONS (7)
  - ASPERGILLOSIS [None]
  - CONGESTIVE CARDIOMYOPATHY [None]
  - NEUTROPENIA [None]
  - PNEUMONIA [None]
  - PSEUDOMONAS INFECTION [None]
  - RESUSCITATION [None]
  - SEPTIC SHOCK [None]
